FAERS Safety Report 8743090 (Version 3)
Quarter: 2014Q1

REPORT INFORMATION
  Report Type: Spontaneous
  Country: US (occurrence: US)
  Receive Date: 20120824
  Receipt Date: 20140102
  Transmission Date: 20141002
  Serious: Yes (Life-Threatening, Hospitalization, Other)
  Sender: FDA-Public Use
  Company Number: US-009507513-1208USA008485

PATIENT
  Sex: Female
  Weight: 78.5 kg

DRUGS (1)
  1. NUVARING [Suspect]
     Indication: CONTRACEPTION
     Dosage: UNK
     Dates: start: 201003, end: 20100811

REACTIONS (6)
  - Pneumonia [Unknown]
  - Pulmonary embolism [Recovered/Resolved]
  - Road traffic accident [Unknown]
  - Tricuspid valve incompetence [Unknown]
  - Musculoskeletal chest pain [Unknown]
  - Palpitations [Unknown]
